FAERS Safety Report 5264111-3 (Version None)
Quarter: 2007Q1

REPORT INFORMATION
  Report Type: 
  Country: None (occurrence: None)
  Receive Date: 20070313
  Receipt Date: 20070301
  Transmission Date: 20070707
  Serious: Yes (Other)
  Sender: FDA-Public Use
  Company Number: FR-PFIZER INC-2007011218

PATIENT
  Sex: Female
  Weight: 135 kg

DRUGS (8)
  1. LYRICA [Suspect]
     Indication: DIABETIC NEUROPATHY
     Dosage: DAILY DOSE:150MG
     Route: 048
     Dates: start: 20061120, end: 20070105
  2. LYRICA [Suspect]
     Indication: MONONEURITIS
  3. SKENAN [Concomitant]
     Indication: PAIN
     Route: 048
  4. DITROPAN [Concomitant]
  5. PERINDOPRIL ERBUMINE [Concomitant]
  6. AMLODIPINE [Concomitant]
  7. INSULIN ASPART [Concomitant]
     Indication: DIABETES MELLITUS
     Route: 058
  8. CIPROFLOXACIN [Concomitant]
     Indication: URINARY TRACT INFECTION
     Route: 048
     Dates: start: 20061020, end: 20061202

REACTIONS (1)
  - VASCULITIS NECROTISING [None]
